FAERS Safety Report 20810804 (Version 1)
Quarter: 2022Q2

REPORT INFORMATION
  Report Type: Spontaneous
  Country: FR (occurrence: FR)
  Receive Date: 20220510
  Receipt Date: 20220510
  Transmission Date: 20220720
  Serious: Yes (Hospitalization, Other)
  Sender: FDA-Public Use
  Company Number: None

PATIENT
  Age: 26 Year
  Sex: Male

DRUGS (4)
  1. PREGABALIN [Suspect]
     Active Substance: PREGABALIN
     Indication: Self-medication
     Dosage: 10 DF, BETWEEN 5H TO 19H
     Route: 048
     Dates: start: 20220203, end: 20220203
  2. ACETAMINOPHEN [Suspect]
     Active Substance: ACETAMINOPHEN
     Indication: Self-medication
     Route: 048
     Dates: start: 20220203, end: 20220203
  3. TRAMADOL [Suspect]
     Active Substance: TRAMADOL
     Indication: Self-medication
     Route: 048
     Dates: start: 20220203, end: 20220203
  4. CANNABIS SATIVA SUBSP. INDICA TOP [Suspect]
     Active Substance: CANNABIS SATIVA SUBSP. INDICA TOP
     Dosage: 8 JOINTS/DAY
     Route: 055

REACTIONS (3)
  - Intentional product misuse [Recovered/Resolved]
  - Drug dependence [Not Recovered/Not Resolved]
  - Abdominal pain [Recovered/Resolved]

NARRATIVE: CASE EVENT DATE: 20170101
